FAERS Safety Report 24247890 (Version 1)
Quarter: 2024Q3

REPORT INFORMATION
  Report Type: Spontaneous
  Country: CA (occurrence: CA)
  Receive Date: 20240826
  Receipt Date: 20240826
  Transmission Date: 20241016
  Serious: Yes (Death, Hospitalization)
  Sender: ROCHE
  Company Number: CA-ROCHE-10000063504

PATIENT
  Sex: Male

DRUGS (3)
  1. RITUXIMAB [Suspect]
     Active Substance: RITUXIMAB
     Indication: Epstein-Barr virus associated lymphoproliferative disorder
     Route: 065
  2. PREDNISONE [Concomitant]
     Active Substance: PREDNISONE
     Indication: Graft versus host disease
     Route: 065
  3. BRENTUXIMAB VEDOTIN [Concomitant]
     Active Substance: BRENTUXIMAB VEDOTIN
     Route: 065

REACTIONS (9)
  - COVID-19 [Fatal]
  - Cardiorenal syndrome [Fatal]
  - Death [Fatal]
  - Epstein-Barr virus infection [Fatal]
  - Lung consolidation [Fatal]
  - Lung infiltration [Fatal]
  - Off label use [Fatal]
  - Renal impairment [Fatal]
  - Respiratory failure [Fatal]
